FAERS Safety Report 17162862 (Version 1)
Quarter: 2019Q4

REPORT INFORMATION
  Report Type: Spontaneous
  Country: US (occurrence: US)
  Receive Date: 20191216
  Receipt Date: 20191216
  Transmission Date: 20200122
  Serious: Yes (Life-Threatening, Hospitalization, Disabling, Other)
  Sender: FDA-Public Use
  Company Number: None

PATIENT
  Age: 65 Year
  Sex: Female
  Weight: 101.25 kg

DRUGS (2)
  1. VALSARTAN. [Suspect]
     Active Substance: VALSARTAN
     Indication: HYPERTENSION
     Dosage: ?          QUANTITY:2 TABLET(S);?
     Route: 048
     Dates: start: 20171208, end: 20180701
  2. CARVEDIDOL [Concomitant]

REACTIONS (7)
  - Acute kidney injury [None]
  - Depressed mood [None]
  - Loss of employment [None]
  - Stress [None]
  - Angioedema [None]
  - Dyspnoea [None]
  - Drug ineffective [None]

NARRATIVE: CASE EVENT DATE: 20180702
